FAERS Safety Report 5047255-0 (Version None)
Quarter: 2006Q3

REPORT INFORMATION
  Report Type: 
  Country: None (occurrence: None)
  Receive Date: 20060703
  Receipt Date: 20060627
  Transmission Date: 20061208
  Serious: Yes (Death)
  Sender: FDA-Public Use
  Company Number: 2006-141437-NL

PATIENT
  Age: 64 Year
  Sex: Male

DRUGS (12)
  1. DANAPAROID SODIUM [Suspect]
     Indication: DISSEMINATED INTRAVASCULAR COAGULATION
     Dosage: 2500 ANTI_XA
     Route: 042
     Dates: start: 20060324, end: 20060404
  2. GABEXATE MESILATE [Concomitant]
  3. AMIKACIN SULFATE [Concomitant]
  4. PIPERACILLIN SODIUM [Concomitant]
  5. IDARUBICIN HCL [Concomitant]
  6. CYTARABINE [Concomitant]
  7. MEROPENEM [Concomitant]
  8. TOBRAMYCIN [Concomitant]
  9. ANTITHROMBIN III [Concomitant]
  10. TIENAM [Concomitant]
  11. FLUCONAZOLE [Concomitant]
  12. ITRACONAZOLE [Concomitant]

REACTIONS (6)
  - CARDIAC TAMPONADE [None]
  - CONDITION AGGRAVATED [None]
  - INFECTION [None]
  - LEUKAEMIA [None]
  - LIVER DISORDER [None]
  - RENAL IMPAIRMENT [None]
